FAERS Safety Report 14397805 (Version 1)
Quarter: 2018Q1

REPORT INFORMATION
  Report Type: Spontaneous
  Country: US (occurrence: US)
  Receive Date: 20180116
  Receipt Date: 20180116
  Transmission Date: 20180509
  Serious: No
  Sender: FDA-Public Use
  Company Number: US-ALLERGAN-1760876US

PATIENT
  Age: 62 Year
  Sex: Female

DRUGS (5)
  1. CYMBALTA [Concomitant]
     Active Substance: DULOXETINE HYDROCHLORIDE
     Dosage: UNK
     Route: 048
  2. CELEBREX [Concomitant]
     Active Substance: CELECOXIB
     Indication: FIBROMYALGIA
     Dosage: UNK
  3. BOTOX [Suspect]
     Active Substance: ONABOTULINUMTOXINA
     Indication: MIGRAINE
     Dosage: 136 UNITS, SINGLE
     Route: 030
     Dates: start: 20171003, end: 20171003
  4. OXYCODONE [Concomitant]
     Active Substance: OXYCODONE
     Dosage: UNK, PRN
  5. BOTOX COSMETIC [Concomitant]
     Active Substance: ONABOTULINUMTOXINA
     Dosage: UNK , SINGLE
     Route: 030
     Dates: start: 2003, end: 2003

REACTIONS (4)
  - Musculoskeletal pain [Not Recovered/Not Resolved]
  - Muscular weakness [Not Recovered/Not Resolved]
  - Drug ineffective [Unknown]
  - Injection site pain [Not Recovered/Not Resolved]

NARRATIVE: CASE EVENT DATE: 20171003
